FAERS Safety Report 8234102 (Version 2)
Quarter: 2012Q4

REPORT INFORMATION
  Report Type: 
  Country: US (occurrence: US)
  Receive Date: 20111107
  Receipt Date: 20121107
  Transmission Date: 20130627
  Serious: No
  Sender: FDA-Public Use
  Company Number: US-AMGEN-USASP2011047273

PATIENT
  Age: 81 Year
  Sex: Female

DRUGS (3)
  1. ENBREL [Suspect]
     Indication: PSORIATIC ARTHROPATHY
     Dosage: 25 mg, qwk
     Dates: start: 20040601, end: 20120304
  2. ENBREL [Suspect]
     Indication: PSORIASIS
  3. DAYPRO [Concomitant]
     Dosage: UNK

REACTIONS (9)
  - Headache [Unknown]
  - Oedema peripheral [Not Recovered/Not Resolved]
  - Dysphagia [Not Recovered/Not Resolved]
  - Paranasal sinus hypersecretion [Not Recovered/Not Resolved]
  - Pain [Not Recovered/Not Resolved]
  - Osteopenia [Recovered/Resolved]
  - Paraesthesia [Not Recovered/Not Resolved]
  - Rash maculo-papular [Unknown]
  - Sinusitis [Not Recovered/Not Resolved]
